FAERS Safety Report 8911956 (Version 1)
Quarter: 2012Q4

REPORT INFORMATION
  Report Type: 
  Country: FR (occurrence: FR)
  Receive Date: 20121116
  Receipt Date: 20121116
  Transmission Date: 20130627
  Serious: Yes (Hospitalization)
  Sender: FDA-Public Use
  Company Number: FR-PFIZER INC-2012283516

PATIENT
  Age: 22 Year
  Sex: Female

DRUGS (10)
  1. TAZOCILLINE [Suspect]
     Indication: ABSCESS
     Dosage: UNK
     Route: 042
     Dates: start: 20120307, end: 20120316
  2. TAZOCILLINE [Suspect]
     Dosage: 4 g, 2x/day
     Route: 042
     Dates: start: 20120323, end: 20120423
  3. DALACINE [Suspect]
     Indication: ABSCESS
     Dosage: 600 mg, 1x/day
     Route: 042
     Dates: start: 20120316, end: 20120323
  4. DALACINE [Suspect]
     Dosage: 600 mg, 3x/day
     Route: 042
     Dates: start: 20120323, end: 20120423
  5. ZYVOXID [Suspect]
     Indication: ABSCESS
     Dosage: 600 mg, 2x/day
     Route: 042
     Dates: start: 20120316, end: 20120423
  6. LYRICA [Concomitant]
     Dosage: 100 mg, 3x/day
  7. ATARAX [Concomitant]
     Indication: PRURITUS
     Dosage: 1 DF, 1x/day
  8. COUMADINE [Concomitant]
     Dosage: 10 mg, 1x/day
  9. RIVOTRIL [Concomitant]
     Dosage: 1.25 in the morning, at noon and 1.75 in the evening
  10. ACUPAN [Concomitant]
     Dosage: 20 mg, 3x/day

REACTIONS (4)
  - Dyspnoea [Recovered/Resolved]
  - Malaise [Recovered/Resolved]
  - Rash maculo-papular [Recovered/Resolved]
  - Pruritus [Recovered/Resolved]
